FAERS Safety Report 8964486 (Version 1)
Quarter: 2012Q4

REPORT INFORMATION
  Report Type: 
  Country: US (occurrence: US)
  Receive Date: 20121213
  Receipt Date: 20121213
  Transmission Date: 20130627
  Serious: Yes (Hospitalization, Other)
  Sender: FDA-Public Use
  Company Number: US-TARO-2012P1066298

PATIENT
  Age: 77 Year
  Sex: Male
  Weight: 63.2 kg

DRUGS (24)
  1. AMIODARONE [Suspect]
     Indication: ATRIAL FIBRILLATION
     Route: 042
  2. AMIODARONE [Suspect]
     Indication: ATRIAL FIBRILLATION
  3. AMIODARONE [Suspect]
     Indication: ATRIAL FIBRILLATION
  4. AMIODARONE [Suspect]
     Indication: ATRIAL FIBRILLATION
     Route: 048
  5. DABIGATRAN ETEXILATE [Suspect]
     Route: 048
  6. DABIGATRAN ETEXILATE [Suspect]
     Route: 048
  7. DABIGATRAN ETEXILATE [Suspect]
     Route: 048
  8. DABIGATRAN ETEXILATE [Suspect]
     Route: 048
  9. DABIGATRAN ETEXILATE [Suspect]
     Route: 048
  10. ASPIRIN [Concomitant]
  11. CITALOPRAM [Concomitant]
  12. DIGOXIN [Concomitant]
  13. FINASTERIDE [Concomitant]
  14. FUROSEMIDE [Concomitant]
  15. GLIPIZIDE [Concomitant]
  16. LISINOPRIL [Concomitant]
  17. MEGESTROL ACETATE [Concomitant]
  18. METOPROLOL [Concomitant]
  19. MULTIVITAMIN [Concomitant]
  20. PANTOPRAZOLE [Concomitant]
  21. SENNA TABLETS [Concomitant]
  22. TAMSULOSIN [Concomitant]
  23. INSULIN LISPRO [Concomitant]
  24. WARFARIN [Concomitant]

REACTIONS (2)
  - Upper gastrointestinal haemorrhage [Recovered/Resolved]
  - Drug interaction [Recovered/Resolved]
